FAERS Safety Report 10420985 (Version 1)
Quarter: 2014Q3

REPORT INFORMATION
  Report Type: Spontaneous
  Country: US (occurrence: None)
  Receive Date: 20140715
  Receipt Date: 20140715
  Transmission Date: 20150326
  Serious: Yes (Hospitalization)
  Sender: FDA-Public Use
  Company Number: 2013060013

PATIENT

DRUGS (1)
  1. CESAMET [Suspect]
     Active Substance: NABILONE
     Indication: FACIAL PAIN
     Route: 048

REACTIONS (3)
  - Facial bones fracture [None]
  - Loss of consciousness [None]
  - Off label use [None]
